FAERS Safety Report 6148763-1 (Version None)
Quarter: 2009Q2

REPORT INFORMATION
  Report Type: 
  Country: None (occurrence: None)
  Receive Date: 20090406
  Receipt Date: 20090323
  Transmission Date: 20091009
  Serious: Yes (Death)
  Sender: FDA-Public Use
  Company Number: ADE2009-0519

PATIENT
  Age: 36 Year
  Sex: Female

DRUGS (6)
  1. CITALOPRAM HYDROBROMIDE [Suspect]
  2. OLANZAPINE [Suspect]
  3. CARISOPRODOL [Suspect]
  4. DEXTROPROPOXYPHIENE [Suspect]
  5. ACETAMINOPHEN [Suspect]
  6. CARBAMAZEPINE [Suspect]

REACTIONS (1)
  - DRUG TOXICITY [None]
